FAERS Safety Report 24245898 (Version 1)
Quarter: 2024Q3

REPORT INFORMATION
  Report Type: Spontaneous
  Country: US (occurrence: US)
  Receive Date: 20240824
  Receipt Date: 20240824
  Transmission Date: 20241016
  Serious: Yes (Hospitalization, Other)
  Sender: ABBVIE
  Company Number: US-ABBVIE-5889690

PATIENT
  Sex: Female
  Weight: 108 kg

DRUGS (13)
  1. HUMIRA [Suspect]
     Active Substance: ADALIMUMAB
     Indication: Psoriatic arthropathy
     Dosage: FORM STRENGTH: 40 MG
     Route: 058
     Dates: start: 2021
  2. HUMIRA [Suspect]
     Active Substance: ADALIMUMAB
     Indication: Fibromyalgia
  3. LAMOTRIGINE [Concomitant]
     Active Substance: LAMOTRIGINE
     Indication: Depression
  4. BUSPIRONE [Concomitant]
     Active Substance: BUSPIRONE HYDROCHLORIDE
     Indication: Anxiety
  5. CLONAZEPAM [Concomitant]
     Active Substance: CLONAZEPAM
     Indication: Anxiety
  6. BACLOFEN [Concomitant]
     Active Substance: BACLOFEN
     Indication: Back disorder
  7. PREGABALIN [Concomitant]
     Active Substance: PREGABALIN
     Indication: Fibromyalgia
  8. SINGULAIR [Concomitant]
     Active Substance: MONTELUKAST SODIUM
     Indication: Multiple allergies
  9. NALTREXONE [Concomitant]
     Active Substance: NALTREXONE
     Indication: Pain
  10. MODAFINIL [Concomitant]
     Active Substance: MODAFINIL
     Indication: Sleep apnoea syndrome
  11. CYMBALTA [Concomitant]
     Active Substance: DULOXETINE HYDROCHLORIDE
     Indication: Anxiety
  12. ARBUTIN [Concomitant]
     Active Substance: ARBUTIN
     Indication: Hyperhidrosis
  13. BUPROPION [Concomitant]
     Active Substance: BUPROPION
     Indication: Anxiety

REACTIONS (5)
  - Bursitis [Recovered/Resolved]
  - Off label use [Not Recovered/Not Resolved]
  - Pruritus [Recovered/Resolved]
  - Cellulitis [Recovered/Resolved]
  - Injection site discharge [Not Recovered/Not Resolved]

NARRATIVE: CASE EVENT DATE: 20210101
